FAERS Safety Report 8935265 (Version 1)
Quarter: 2012Q4

REPORT INFORMATION
  Report Type: 
  Country: US (occurrence: US)
  Receive Date: 20121129
  Receipt Date: 20121129
  Transmission Date: 20130627
  Serious: No
  Sender: FDA-Public Use
  Company Number: US-ASTRAZENECA-2012SE86680

PATIENT
  Age: 83 Year
  Sex: Female
  Weight: 59.4 kg

DRUGS (9)
  1. ATACAND [Suspect]
     Indication: HYPERTENSION
     Dosage: 32 MG DAILY SAMPLES
     Route: 048
     Dates: start: 20121113
  2. ATACAND [Suspect]
     Indication: HYPERTENSION
     Route: 048
     Dates: start: 20121106
  3. ATACAND [Suspect]
     Indication: HYPERTENSION
     Dosage: 32 MG DAILY SAMPLES
     Route: 048
     Dates: start: 201210
  4. ATACAND [Suspect]
     Indication: HYPERTENSION
     Route: 048
     Dates: start: 20120521
  5. ATACAND [Suspect]
     Indication: HYPERTENSION
     Route: 048
  6. SIMVASTATIN [Concomitant]
     Indication: HYPERLIPIDAEMIA
  7. TERAZOSIN [Concomitant]
     Indication: HYPERTENSION
  8. HYDROCHLOROTHIAZIDE [Concomitant]
     Indication: HYPERTENSION
  9. LEVOTHYROXINE [Concomitant]

REACTIONS (3)
  - Drug ineffective [Unknown]
  - Hypertension [Unknown]
  - Dizziness [Unknown]
